FAERS Safety Report 9478234 (Version 2)
Quarter: 2013Q4

REPORT INFORMATION
  Report Type: Spontaneous
  Country: DE (occurrence: None)
  Receive Date: 20130809
  Receipt Date: 20131113
  Transmission Date: 20140711
  Serious: Yes (Other)
  Sender: FDA-Public Use
  Company Number: 2013037314

PATIENT
  Age: 75 Year
  Sex: Male

DRUGS (14)
  1. PRIVIGEN (IMMUNE GLOBULIN INTRAVENOUS (HUMAN) 10% LIQUID) [Suspect]
     Indication: CHRONIC INFLAMMATORY DEMYELINATING POLYRADICULONEUROPATHY
     Dosage: 9:30 TO 11:30; INFUSION RATE 4ML/MIN. MAX. 6 ML/MIN
     Route: 042
     Dates: start: 20130802, end: 20130802
  2. PREDNISON (PREDNISONE) [Concomitant]
  3. IDEOS (LEKOVIT CA) [Concomitant]
  4. PANTOZOL (PANTOPRAZOLE SODIUM) [Concomitant]
  5. L-THYROXIN (LEVOTHYROXINE SODIUM) [Concomitant]
  6. ATORVASTATIN (ATORVASTATIN) [Concomitant]
  7. DICLOFENAC (DICLOFENAC) [Concomitant]
  8. VALORON (TILIDINE HYDROCHLORIDE) [Concomitant]
  9. PASPERTIN (METOCLOPRAMIDE HYDROCHLORIDE) [Concomitant]
  10. ZOPICLON (ZOPICLONE) [Concomitant]
  11. COAPROVEL 9KARVEA HCT) [Concomitant]
  12. ATOSIL [Concomitant]
  13. DELIX (RAMIPRIL) [Concomitant]
  14. CLOPIDOGREL [Concomitant]

REACTIONS (4)
  - Delirium [None]
  - Aggression [None]
  - Disorientation [None]
  - Off label use [None]
